FAERS Safety Report 9122126 (Version 1)
Quarter: 2013Q1

REPORT INFORMATION
  Report Type: Spontaneous
  Country: US (occurrence: None)
  Receive Date: 20130125
  Receipt Date: 20130125
  Transmission Date: 20140127
  Serious: Yes (Hospitalization)
  Sender: FDA-Public Use
  Company Number: 2012US-004453

PATIENT
  Age: 43 Year
  Sex: Female

DRUGS (6)
  1. OMONTYS (PEGINESATIDE) SOLUTION FOR INJECTION [Suspect]
     Indication: NEPHROGENIC ANAEMIA
     Route: 042
     Dates: start: 20121106, end: 20121106
  2. EPOGEN (EPOETIN ALFA) [Concomitant]
  3. CLONIDINE (CLONIDINE) [Concomitant]
  4. NIFEDIPINE (NIFEDIPINE) [Concomitant]
  5. METOPROLOL SR (METOPROLOL) [Concomitant]
  6. LISINOPRIL (LISINOPRIL) [Concomitant]

REACTIONS (1)
  - Dyspnoea [None]
